FAERS Safety Report 7811582-1 (Version None)
Quarter: 2011Q4

REPORT INFORMATION
  Report Type: 
  Country: None (occurrence: None)
  Receive Date: 20111013
  Receipt Date: 20111011
  Transmission Date: 20120403
  Serious: Yes (Death, Hospitalization)
  Sender: FDA-Public Use
  Company Number: MX-SANOFI-AVENTIS-2011SA066793

PATIENT
  Age: 89 Year
  Sex: Female
  Weight: 45 kg

DRUGS (3)
  1. AMARYL [Suspect]
     Route: 048
     Dates: end: 20110804
  2. PLAVIX [Suspect]
     Route: 048
     Dates: end: 20110804
  3. ENOXAPARIN SODIUM [Suspect]
     Route: 058
     Dates: end: 20110804

REACTIONS (2)
  - MYOCARDIAL INFARCTION [None]
  - THROMBOSIS [None]
